FAERS Safety Report 12959358 (Version 1)
Quarter: 2016Q4

REPORT INFORMATION
  Report Type: Report from Study
  Country: US (occurrence: US)
  Receive Date: 20161121
  Receipt Date: 20161121
  Transmission Date: 20170207
  Serious: Yes (Other)
  Sender: FDA-Public Use
  Company Number: PHEH2016US029636

PATIENT
  Sex: Female

DRUGS (1)
  1. COSENTYX [Suspect]
     Active Substance: SECUKINUMAB
     Indication: PRODUCT USED FOR UNKNOWN INDICATION
     Dosage: 150 MG, UNK
     Route: 065
     Dates: start: 201609

REACTIONS (5)
  - Staphylococcal infection [Unknown]
  - Herpes zoster [Not Recovered/Not Resolved]
  - Lip blister [Unknown]
  - Infection [Not Recovered/Not Resolved]
  - Blister [Unknown]
